FAERS Safety Report 6575760-4 (Version None)
Quarter: 2010Q1

REPORT INFORMATION
  Report Type: 
  Country: None (occurrence: None)
  Receive Date: 20100209
  Receipt Date: 20100205
  Transmission Date: 20100710
  Serious: Yes (Hospitalization)
  Sender: FDA-Public Use
  Company Number: GB-TEVA-223521ISR

PATIENT
  Age: 21 Year
  Sex: Male

DRUGS (2)
  1. MORPHINE [Suspect]
  2. ATRACURIUM [Suspect]

REACTIONS (1)
  - ANAPHYLACTIC REACTION [None]
